FAERS Safety Report 8565509-8 (Version None)
Quarter: 2012Q3

REPORT INFORMATION
  Report Type: 
  Country: None (occurrence: None)
  Receive Date: 20120803
  Receipt Date: 20120725
  Transmission Date: 20120928
  Serious: Yes (Hospitalization)
  Sender: FDA-Public Use
  Company Number: JP-JNJFOC-20120714290

PATIENT
  Age: 56 Year
  Sex: Female

DRUGS (9)
  1. DARUNAVIR ETHANOLATE [Suspect]
     Indication: HIV INFECTION
     Route: 048
  2. SULFAMETHOXAZOLE AND TRIMETHOPRIM [Suspect]
     Indication: ANTIFUNGAL PROPHYLAXIS
     Route: 065
  3. EMTRICITABINE/TENOFOVIR DISOPROXIL FUMARATE [Suspect]
     Indication: HIV INFECTION
     Route: 048
  4. ANTIHISTAMINES [Suspect]
     Indication: DRUG ERUPTION
     Route: 065
  5. PREDNISOLONE [Suspect]
     Route: 048
  6. ADRENOCORTICAL HORMONE [Suspect]
     Indication: DRUG ERUPTION
     Route: 061
  7. PREZISTA [Suspect]
     Indication: ANTIRETROVIRAL THERAPY
     Route: 048
  8. RITONAVIR [Suspect]
     Indication: HIV INFECTION
     Route: 065
  9. PREDNISOLONE [Suspect]
     Indication: DRUG ERUPTION
     Route: 048

REACTIONS (6)
  - DIABETES MELLITUS [None]
  - FLUSHING [None]
  - HYPERTROPHY [None]
  - MALAISE [None]
  - DRUG ERUPTION [None]
  - PYREXIA [None]
